FAERS Safety Report 13800538 (Version 2)
Quarter: 2017Q3

REPORT INFORMATION
  Report Type: Spontaneous
  Country: JP (occurrence: JP)
  Receive Date: 20170727
  Receipt Date: 20170731
  Transmission Date: 20171127
  Serious: Yes (Congenital Anomaly, Other)
  Sender: FDA-Public Use
  Company Number: JP-BAYER-2017-136597

PATIENT
  Sex: Female

DRUGS (1)
  1. ACETYLSALICYLIC ACID (} 100 MG) [Suspect]
     Active Substance: ASPIRIN

REACTIONS (6)
  - Cerebellar hypoplasia [None]
  - Foetal exposure during pregnancy [None]
  - Foetal growth restriction [None]
  - Premature delivery [None]
  - Low birth weight baby [None]
  - Developmental delay [None]
